FAERS Safety Report 4356795-9 (Version None)
Quarter: 2004Q2

REPORT INFORMATION
  Report Type: 
  Country: None (occurrence: None)
  Receive Date: 20040507
  Receipt Date: 20040428
  Transmission Date: 20050107
  Serious: Yes (Death, Hospitalization)
  Sender: FDA-Public Use
  Company Number: 01/03198-CDS

PATIENT
  Age: 61 Year
  Sex: Female

DRUGS (7)
  1. CAMPATH [Suspect]
     Indication: PERIPHERAL T-CELL LYMPHOMA UNSPECIFIED
     Dosage: 3, 10; THAN 30 MG 3 TIMES WEEKLY, INTRAVENOUS
     Route: 042
     Dates: start: 20001108, end: 20001211
  2. VALTREX [Concomitant]
  3. ACETAMINOPHEN [Concomitant]
  4. CLEMASTINE (CLEMASTINE) [Concomitant]
  5. BETAMETHASONE [Concomitant]
  6. SULFAMETHOXAZOLE + TRIMETHOPRIM [Concomitant]
  7. ALLOPURINOL TAB [Concomitant]

REACTIONS (7)
  - DRUG INEFFECTIVE [None]
  - EPSTEIN-BARR VIRUS INFECTION [None]
  - HISTIOCYTOSIS HAEMATOPHAGIC [None]
  - LUNG INFILTRATION [None]
  - PANCYTOPENIA [None]
  - PYREXIA [None]
  - T-CELL DEPLETION [None]
